FAERS Safety Report 13911063 (Version 1)
Quarter: 2017Q3

REPORT INFORMATION
  Report Type: Spontaneous
  Country: UM (occurrence: UM)
  Receive Date: 20170827
  Receipt Date: 20170827
  Transmission Date: 20171127
  Serious: Yes (Disabling)
  Sender: FDA-Public Use
  Company Number: None

PATIENT
  Sex: Female

DRUGS (7)
  1. LIPITOR [Concomitant]
     Active Substance: ATORVASTATIN CALCIUM
  2. PREDNISONE. [Concomitant]
     Active Substance: PREDNISONE
  3. ZANTAC [Concomitant]
     Active Substance: RANITIDINE HYDROCHLORIDE
  4. CALCIUM [Concomitant]
     Active Substance: CALCIUM
  5. VITAMIN D3 [Concomitant]
     Active Substance: CHOLECALCIFEROL
  6. HUMIRA [Suspect]
     Active Substance: ADALIMUMAB
     Indication: AUTOIMMUNE DISORDER
     Dosage: ?          OTHER FREQUENCY:ONCE EVERY 2 WEEKS;?
     Route: 058
     Dates: start: 20161128, end: 20170221
  7. ROPRANANOL [Concomitant]

REACTIONS (11)
  - Vascular pain [None]
  - Pain in extremity [None]
  - Pulmonary fibrosis [None]
  - Gait disturbance [None]
  - Skin discolouration [None]
  - Staphylococcal infection [None]
  - Myalgia [None]
  - Oxygen saturation decreased [None]
  - Infection [None]
  - Injection site reaction [None]
  - Arthralgia [None]

NARRATIVE: CASE EVENT DATE: 20170221
